FAERS Safety Report 24827956 (Version 1)
Quarter: 2025Q1

REPORT INFORMATION
  Report Type: Spontaneous
  Country: US (occurrence: US)
  Receive Date: 20250109
  Receipt Date: 20250109
  Transmission Date: 20250409
  Serious: No
  Sender: MERCK
  Company Number: US-009507513-2501USA002095

PATIENT
  Sex: Female
  Weight: 86.6 kg

DRUGS (14)
  1. WINREVAIR [Suspect]
     Active Substance: SOTATERCEPT-CSRK
     Indication: Product used for unknown indication
     Dates: start: 2024
  2. REMODULIN [Suspect]
     Active Substance: TREPROSTINIL
     Indication: Pulmonary arterial hypertension
     Route: 058
     Dates: start: 20241129
  3. POTASSIUM CHLORIDE [Concomitant]
     Active Substance: POTASSIUM CHLORIDE
  4. SODIUM CHLORIDE [Concomitant]
     Active Substance: SODIUM CHLORIDE
  5. OPSUMIT [Concomitant]
     Active Substance: MACITENTAN
  6. LASIX [Concomitant]
     Active Substance: FUROSEMIDE
  7. KETAMINE HYDROCHLORIDE [Concomitant]
     Active Substance: KETAMINE HYDROCHLORIDE
  8. LECITHIN [GLYCINE MAX EXTRACT] [Concomitant]
  9. CLONIDINE [Concomitant]
     Active Substance: CLONIDINE
  10. KETOPROFEN [Concomitant]
     Active Substance: KETOPROFEN
  11. LIDOCAINE HYDROCHLORIDE [Concomitant]
     Active Substance: LIDOCAINE HYDROCHLORIDE
  12. AMITRIPTYLINE HYDROCHLORIDE [Concomitant]
     Active Substance: AMITRIPTYLINE HYDROCHLORIDE
  13. GABAPENTIN [Concomitant]
     Active Substance: GABAPENTIN
  14. POLOXAMER [Concomitant]
     Active Substance: POLOXAMER

REACTIONS (1)
  - Weight increased [Unknown]

NARRATIVE: CASE EVENT DATE: 20240101
